FAERS Safety Report 16426367 (Version 1)
Quarter: 2019Q2

REPORT INFORMATION
  Report Type: Spontaneous
  Country: CN (occurrence: CN)
  Receive Date: 20190613
  Receipt Date: 20190613
  Transmission Date: 20190711
  Serious: Yes (Life-Threatening)
  Sender: FDA-Public Use
  Company Number: CN-JNJFOC-20190613079

PATIENT
  Age: 44 Year
  Sex: Male
  Weight: 58 kg

DRUGS (1)
  1. DUROGESIC [Suspect]
     Active Substance: FENTANYL
     Indication: CANCER PAIN
     Route: 062
     Dates: start: 20190510

REACTIONS (5)
  - Tachypnoea [Recovering/Resolving]
  - Pupillary reflex impaired [Recovering/Resolving]
  - Heart rate increased [Recovering/Resolving]
  - Coma [Recovering/Resolving]
  - Musculoskeletal stiffness [Recovering/Resolving]

NARRATIVE: CASE EVENT DATE: 20190510
